FAERS Safety Report 5635892-1 (Version None)
Quarter: 2008Q1

REPORT INFORMATION
  Report Type: 
  Country: None (occurrence: None)
  Receive Date: 20080221
  Receipt Date: 20080208
  Transmission Date: 20080703
  Serious: Yes (Disabling)
  Sender: FDA-Public Use
  Company Number: TCI2008A00029

PATIENT
  Age: 54 Year
  Sex: Male

DRUGS (6)
  1. ACTOS [Suspect]
     Indication: DIABETES MELLITUS
     Dosage: 30 MG (30 MG, 1 IN 1 D) PER ORAL
     Route: 048
     Dates: start: 20071020, end: 20071112
  2. CANDESARTAN CILEXETIL [Concomitant]
  3. GLUCOBAY [Concomitant]
  4. DAONIL (GLIBENCLAMIDE) [Concomitant]
  5. METHYCOBAL (MECOBALAMIN) [Concomitant]
  6. TOWARAT-CR (NIFEDIPINE) [Concomitant]

REACTIONS (6)
  - ASTHENIA [None]
  - DIABETIC NEUROPATHY [None]
  - GAIT DISTURBANCE [None]
  - HYPOAESTHESIA [None]
  - LUMBAR SPINAL STENOSIS [None]
  - MYALGIA [None]
